FAERS Safety Report 6436902-4 (Version None)
Quarter: 2009Q4

REPORT INFORMATION
  Report Type: 
  Country: None (occurrence: None)
  Receive Date: 20091109
  Receipt Date: 20091105
  Transmission Date: 20100525
  Serious: No
  Sender: FDA-Public Use
  Company Number: 2009009296

PATIENT
  Age: 44 Year
  Sex: Female
  Weight: 88.905 kg

DRUGS (3)
  1. FENTORA [Suspect]
     Dosage: (600 MCG, ONCE), BU
     Route: 002
  2. ACTIQ [Suspect]
     Indication: BACK PAIN
     Dosage: 600 MCG (600 MCG, 1 IN 1 D), BU
     Route: 002
     Dates: start: 20050101
  3. METHADONE (METHADONE) (10 MILLIGRAM) [Concomitant]

REACTIONS (3)
  - DIZZINESS [None]
  - DRUG DISPENSING ERROR [None]
  - WRONG DRUG ADMINISTERED [None]
